FAERS Safety Report 7370680-X (Version None)
Quarter: 2011Q1

REPORT INFORMATION
  Report Type: 
  Country: None (occurrence: None)
  Receive Date: 20110323
  Receipt Date: 20110228
  Transmission Date: 20110831
  Serious: No
  Sender: FDA-Public Use
  Company Number: US-BAYER-2011-022181

PATIENT
  Sex: Female
  Weight: 113 kg

DRUGS (4)
  1. ANTI-DIABETICS [Concomitant]
     Dosage: DAILY, ONCE
     Route: 048
  2. ASPIRIN [Suspect]
     Indication: PRODUCT USED FOR UNKNOWN INDICATION
     Dosage: DAILY, ONCE
     Route: 048
  3. ANTIHYPERTENSIVES [Concomitant]
     Dosage: DAILY, ONCE
     Route: 048
  4. ALEVE [Suspect]
     Indication: ANALGESIC THERAPY
     Dosage: UNK
     Route: 048
     Dates: start: 20110224, end: 20110225

REACTIONS (3)
  - URTICARIA [None]
  - EYE SWELLING [None]
  - ERYTHEMA [None]
